FAERS Safety Report 15895765 (Version 1)
Quarter: 2019Q1

REPORT INFORMATION
  Report Type: Report from Study
  Country: None (occurrence: AU)
  Receive Date: 20190131
  Receipt Date: 20190131
  Transmission Date: 20190417
  Serious: Yes (Other)
  Sender: FDA-Public Use
  Company Number: AU-ABBVIE-19S-008-2639385-00

PATIENT
  Age: 76 Year
  Sex: Male

DRUGS (2)
  1. LUPRON DEPOT [Suspect]
     Active Substance: LEUPROLIDE ACETATE
     Indication: PROSTATE CANCER
     Route: 030
     Dates: start: 2017
  2. LUPRON DEPOT [Suspect]
     Active Substance: LEUPROLIDE ACETATE
     Route: 030
     Dates: start: 20190123

REACTIONS (8)
  - Abdominal distension [Unknown]
  - Complication of device insertion [Unknown]
  - Prostatic specific antigen increased [Unknown]
  - Muscular weakness [Unknown]
  - Arterial perforation [Unknown]
  - Myocardial infarction [Unknown]
  - Prostate cancer recurrent [Unknown]
  - Cardiac operation [Unknown]

NARRATIVE: CASE EVENT DATE: 201806
